FAERS Safety Report 10073999 (Version 3)
Quarter: 2014Q4

REPORT INFORMATION
  Report Type: Report from Study
  Country: US (occurrence: US)
  Receive Date: 20140412
  Receipt Date: 20141028
  Transmission Date: 20150528
  Serious: Yes (Hospitalization, Other)
  Sender: FDA-Public Use
  Company Number: US-009507513-1404USA005310

PATIENT
  Age: 61 Year
  Sex: Female
  Weight: 109.7 kg

DRUGS (16)
  1. FERROUS FUMARATE [Concomitant]
     Active Substance: FERROUS FUMARATE
     Dosage: TOTAL DAILY DOSE: 324 MG
     Route: 048
     Dates: start: 20130101
  2. NITROGLYCERIN. [Concomitant]
     Active Substance: NITROGLYCERIN
     Dosage: TOTAL DAILY DOSE: 0.4 MG PRN
     Route: 048
     Dates: start: 20120323
  3. OMEGA-3 MARINE TRIGLYCERIDES [Concomitant]
     Active Substance: FISH OIL
     Dosage: TOTAL DAILY DOSE: 3000 MG
     Route: 048
     Dates: start: 20121212
  4. EZETIMIBE AND SIMVASTATIN [Suspect]
     Active Substance: EZETIMIBE\SIMVASTATIN
     Indication: ACUTE CORONARY SYNDROME
     Dosage: UNK
     Route: 048
     Dates: start: 20081119
  5. CARVEDILOL. [Concomitant]
     Active Substance: CARVEDILOL
     Dosage: TOTAL DAILY DOSE: 50 MG
     Route: 048
     Dates: start: 20090417
  6. LISINOPRIL. [Concomitant]
     Active Substance: LISINOPRIL
     Dosage: TOTAL DAILY DOSE: 5 MG
     Route: 048
     Dates: start: 20130319
  7. FUROSEMIDE. [Suspect]
     Active Substance: FUROSEMIDE
     Dosage: TOTAL DAILY DOSE: 80 MG
     Route: 048
     Dates: start: 20110301
  8. FLEXERIL [Concomitant]
     Active Substance: CYCLOBENZAPRINE HYDROCHLORIDE
     Dosage: TOTAL DAILY DOSE:10 MG
     Route: 048
     Dates: start: 20091001
  9. CHOLECALCIFEROL [Concomitant]
     Active Substance: CHOLECALCIFEROL
     Dosage: TOTAL DAILY DOSE: 5000 UNITS
     Route: 048
     Dates: start: 20130613
  10. PLAVIX [Concomitant]
     Active Substance: CLOPIDOGREL BISULFATE
     Dosage: TOTAL DAILY DOSE: 75 MG
     Route: 048
     Dates: start: 20081027
  11. ALLOPURINOL. [Concomitant]
     Active Substance: ALLOPURINOL
     Dosage: TOTAL DAILY DOSE: 100 MG
     Route: 048
     Dates: start: 20121121
  12. WARFARIN [Concomitant]
     Active Substance: WARFARIN
     Dosage: TOTAL DAILY DOSE: 2.5 MG
     Route: 048
     Dates: start: 20120601
  13. NOVOLOG [Concomitant]
     Active Substance: INSULIN ASPART
     Dosage: TOTAL DAILY DOSE: SLIDING SCALE
     Route: 058
     Dates: start: 20081027
  14. LANTUS [Concomitant]
     Active Substance: INSULIN GLARGINE
     Dosage: TOTAL DAILY DOSE: 52 UNITS
     Route: 058
     Dates: start: 20130101
  15. OMEPRAZOLE. [Concomitant]
     Active Substance: OMEPRAZOLE
     Dosage: TOTAL DAILY DOSE:40 MG
     Route: 048
     Dates: start: 20100101
  16. ISOSORBIDE MONONITRATE. [Concomitant]
     Active Substance: ISOSORBIDE MONONITRATE
     Dosage: TOTAL DAILY DOSE:60 MG
     Route: 048
     Dates: start: 20081027

REACTIONS (1)
  - Acute kidney injury [Recovered/Resolved]

NARRATIVE: CASE EVENT DATE: 20140403
